FAERS Safety Report 13928355 (Version 2)
Quarter: 2017Q3

REPORT INFORMATION
  Report Type: Report from Study
  Country: US (occurrence: US)
  Receive Date: 20170901
  Receipt Date: 20170901
  Transmission Date: 20171127
  Serious: No
  Sender: FDA-Public Use
  Company Number: PHEH2017US027300

PATIENT
  Sex: Female

DRUGS (1)
  1. TRAVATAN Z [Suspect]
     Active Substance: TRAVOPROST
     Indication: PRODUCT USED FOR UNKNOWN INDICATION
     Dosage: 1 DRP, QD, AT BED TIME
     Route: 065
     Dates: start: 20170816, end: 20170818

REACTIONS (6)
  - Eye pruritus [Unknown]
  - Feeling abnormal [Unknown]
  - Hypersensitivity [Unknown]
  - Visual impairment [Unknown]
  - Ocular hyperaemia [Recovered/Resolved]
  - Eye irritation [Unknown]
